FAERS Safety Report 8507690-2 (Version None)
Quarter: 2012Q3

REPORT INFORMATION
  Report Type: 
  Country: None (occurrence: None)
  Receive Date: 20120713
  Receipt Date: 20120703
  Transmission Date: 20120928
  Serious: Yes (Other)
  Sender: FDA-Public Use
  Company Number: FI-ACCORD-014056

PATIENT

DRUGS (2)
  1. DONEPEZIL HCL [Suspect]
  2. ROCURONIUM BROMIDE [Interacting]
     Indication: MUSCLE RELAXANT THERAPY

REACTIONS (2)
  - DRUG INTERACTION [None]
  - DRUG EFFECT DECREASED [None]
